FAERS Safety Report 8805517 (Version 1)
Quarter: 2012Q4

REPORT INFORMATION
  Report Type: Spontaneous
  Country: GB (occurrence: None)
  Receive Date: 20120917
  Receipt Date: 20120917
  Transmission Date: 20130627
  Serious: Yes (Other)
  Sender: FDA-Public Use
  Company Number: 2012AP002871

PATIENT
  Age: 81 Year
  Sex: Female

DRUGS (5)
  1. RAMIPRIL (RAMIPRIL) [Suspect]
     Indication: DRUG USE FOR UNKNOWN INDICATION
  2. BISOPROLOL (BISOPROLOL) [Concomitant]
  3. GLYCERYL TRINITRATE (GLYCERYL TRINITRATE) [Concomitant]
  4. ISOSOREIDE MONONITRATE (ISOSORBIDE MONONITRATE) [Concomitant]
  5. WARFARIN SODIUM (WARFARIN SODIUM) [Concomitant]

REACTIONS (2)
  - Laryngospasm [None]
  - Cough [None]
